FAERS Safety Report 6615807-X (Version None)
Quarter: 2010Q1

REPORT INFORMATION
  Report Type: 
  Country: None (occurrence: None)
  Receive Date: 20100305
  Receipt Date: 20100302
  Transmission Date: 20100710
  Serious: Yes (Death, Hospitalization)
  Sender: FDA-Public Use
  Company Number: US-JNJFOC-20100208048

PATIENT
  Sex: Female
  Weight: 85 kg

DRUGS (26)
  1. GOLIMUMAB [Suspect]
     Indication: RHEUMATOID ARTHRITIS
     Route: 058
  2. GOLIMUMAB [Suspect]
     Route: 058
  3. ADVAIR DISKUS 100/50 [Concomitant]
     Route: 055
  4. CHONDROITIN SULFATE W/GLUCOSAMINE [Concomitant]
     Route: 048
  5. VITAMIN D [Concomitant]
     Route: 048
  6. CALCIUM [Concomitant]
     Route: 048
  7. AVALIDE [Concomitant]
     Route: 048
  8. FOLIC ACID [Concomitant]
     Route: 048
  9. RANITIDINE [Concomitant]
     Route: 048
  10. MIRALAX [Concomitant]
     Route: 048
  11. AMITRIPTYLINE HCL [Concomitant]
     Route: 048
  12. FOSAMAX [Concomitant]
     Route: 048
  13. MACRODANTIN [Concomitant]
     Route: 048
  14. IMDUR [Concomitant]
     Route: 048
  15. VICODIN [Concomitant]
     Route: 048
  16. PREVACID [Concomitant]
     Route: 048
  17. ZOCOR [Concomitant]
     Route: 048
  18. AMBIEN [Concomitant]
     Route: 048
  19. PLAVIX [Concomitant]
     Route: 048
  20. RONDEC DM [Concomitant]
     Route: 048
  21. AMITIZA [Concomitant]
     Route: 048
  22. METHOTREXATE [Concomitant]
     Route: 048
  23. DITROPAN [Concomitant]
     Route: 048
  24. METOPROLOL TARTRATE [Concomitant]
     Route: 048
  25. PACERONE [Concomitant]
     Route: 048
  26. VALIUM [Concomitant]
     Route: 048

REACTIONS (2)
  - PNEUMONIA [None]
  - SEPSIS [None]
